FAERS Safety Report 4758264-0 (Version None)
Quarter: 2005Q3

REPORT INFORMATION
  Report Type: 
  Country: None (occurrence: None)
  Receive Date: 20050826
  Receipt Date: 20050622
  Transmission Date: 20060218
  Serious: No
  Sender: FDA-Public Use
  Company Number: WAES 0506USA03270

PATIENT
  Age: 77 Year
  Sex: Male

DRUGS (6)
  1. ZETIA [Suspect]
     Indication: BLOOD CHOLESTEROL INCREASED
     Dosage: 10 MG/DAILY/PO
     Route: 048
     Dates: start: 20041101, end: 20050608
  2. BENICAR [Concomitant]
  3. FLOMAX (MORNIFLUMATE) [Concomitant]
  4. PLAVIX [Concomitant]
  5. PROSCAR [Concomitant]
  6. RETEVASE [Concomitant]

REACTIONS (1)
  - MUSCLE STRAIN [None]
